FAERS Safety Report 6238614-9 (Version None)
Quarter: 2009Q2

REPORT INFORMATION
  Report Type: 
  Country: None (occurrence: None)
  Receive Date: 20090618
  Receipt Date: 20090609
  Transmission Date: 20091009
  Serious: No
  Sender: FDA-Public Use
  Company Number: B0578776A

PATIENT
  Age: 23 Year
  Sex: Male

DRUGS (1)
  1. WELLBUTRIN XL [Suspect]
     Indication: EX-TOBACCO USER
     Dosage: 150 MG / ORAL
     Route: 048

REACTIONS (2)
  - ANGINA PECTORIS [None]
  - ISCHAEMIA [None]
